FAERS Safety Report 11523521 (Version 2)
Quarter: 2016Q1

REPORT INFORMATION
  Report Type: Spontaneous
  Country: US (occurrence: US)
  Receive Date: 20150918
  Receipt Date: 20160224
  Transmission Date: 20160525
  Serious: Yes (Death, Other)
  Sender: FDA-Public Use
  Company Number: US-TAKEDA-TPA2011A08274

PATIENT

DRUGS (2)
  1. ACTOS [Suspect]
     Active Substance: PIOGLITAZONE HYDROCHLORIDE
     Indication: TYPE 2 DIABETES MELLITUS
     Dosage: UNK
     Route: 048
  2. ACTOPLUS MET [Suspect]
     Active Substance: METFORMIN HYDROCHLORIDE\PIOGLITAZONE HYDROCHLORIDE
     Indication: TYPE 2 DIABETES MELLITUS
     Dosage: UNK
     Route: 048
     Dates: start: 20080305

REACTIONS (12)
  - Back pain [Fatal]
  - Metastases to bone [Fatal]
  - Weight decreased [Fatal]
  - Decreased appetite [Fatal]
  - Metastatic carcinoma of the bladder [Fatal]
  - Metastases to liver [Fatal]
  - Functional gastrointestinal disorder [Fatal]
  - Micturition urgency [Fatal]
  - Dysuria [Fatal]
  - Pollakiuria [Fatal]
  - Blood urine present [Fatal]
  - Abdominal pain lower [Fatal]

NARRATIVE: CASE EVENT DATE: 20110304
